FAERS Safety Report 9220450 (Version 1)
Quarter: 2013Q1

REPORT INFORMATION
  Report Type: Spontaneous
  Country: US (occurrence: None)
  Receive Date: 20120830
  Receipt Date: 20120830
  Transmission Date: 20140127
  Serious: Yes (Other)
  Sender: FDA-Public Use
  Company Number: PHEH2012US010735

PATIENT
  Age: 43 Year
  Sex: Male

DRUGS (5)
  1. SANDOSTATIN LAR DEPOT (OCTREOTIDE WITH POLY (D L-LACTIDE-CO-GLYCOLIDE)) [Suspect]
     Indication: CARCINOID SYNDROME
     Route: 030
     Dates: start: 20101230, end: 20120425
  2. OXYCONTIN (OXYCODONE HYDROCHLORIDE) [Concomitant]
  3. CELEXA (CITAOLOPRAM HYDROBROMIDE) [Concomitant]
  4. VICODIN (HYDROCODONE BITARTRATE, PARACETAMOL) [Concomitant]
  5. ZYRLEX (CETIRIZINE) [Concomitant]

REACTIONS (4)
  - Neoplasm malignant [None]
  - Back pain [None]
  - Arthralgia [None]
  - Asthenia [None]
